FAERS Safety Report 7437820-5 (Version None)
Quarter: 2011Q2

REPORT INFORMATION
  Report Type: 
  Country: None (occurrence: None)
  Receive Date: 20110421
  Receipt Date: 20110421
  Transmission Date: 20111010
  Serious: Yes (Death)
  Sender: FDA-Public Use
  Company Number: None

PATIENT
  Age: 61 Year
  Sex: Female

DRUGS (4)
  1. REVLIMID [Suspect]
     Indication: MULTIPLE MYELOMA
     Dosage: REVLIMID 15 MG DAILY ORALLY
     Route: 048
     Dates: start: 20090101, end: 20090901
  2. HYDROMORPHONE HCL [Concomitant]
  3. ONDANSETRON [Concomitant]
  4. DILAUDID [Concomitant]

REACTIONS (2)
  - SPINAL CORD COMPRESSION [None]
  - GAIT DISTURBANCE [None]
